FAERS Safety Report 9804971 (Version 1)
Quarter: 2014Q1

REPORT INFORMATION
  Report Type: Spontaneous
  Country: DE (occurrence: DE)
  Receive Date: 20140109
  Receipt Date: 20140109
  Transmission Date: 20141002
  Serious: Yes (Life-Threatening, Hospitalization)
  Sender: FDA-Public Use
  Company Number: DE-GE HEALTHCARE MEDICAL DIAGNOSTICS-VISP-PR-1312S-1005

PATIENT
  Age: 78 Year
  Sex: Male
  Weight: 110 kg

DRUGS (2)
  1. VISIPAQUE [Suspect]
     Indication: HYDRONEPHROSIS
     Route: 042
     Dates: start: 20131227, end: 20131227
  2. VISIPAQUE [Suspect]
     Indication: DIAGNOSTIC PROCEDURE

REACTIONS (4)
  - Cardiovascular disorder [Recovered/Resolved]
  - Convulsion [Recovered/Resolved]
  - Dyspnoea [Recovered/Resolved]
  - Cardiac arrest [Recovered/Resolved]
